FAERS Safety Report 4431473-6 (Version None)
Quarter: 2004Q3

REPORT INFORMATION
  Report Type: 
  Country: None (occurrence: None)
  Receive Date: 20040824
  Receipt Date: 20040813
  Transmission Date: 20050211
  Serious: Yes (Other)
  Sender: FDA-Public Use
  Company Number: FI-BRISTOL-MYERS SQUIBB COMPANY-12672176

PATIENT
  Age: 4 Decade
  Sex: Male

DRUGS (3)
  1. PRAVACHOL [Suspect]
     Indication: CEREBRAL ATHEROSCLEROSIS
     Dates: start: 20030101, end: 20040801
  2. ASPIRIN [Concomitant]
  3. DYPYRIDAMOLE [Concomitant]

REACTIONS (2)
  - DEAFNESS [None]
  - TINNITUS [None]
